FAERS Safety Report 10925844 (Version 1)
Quarter: 2015Q1

REPORT INFORMATION
  Report Type: Report from Study
  Country: CO (occurrence: CO)
  Receive Date: 20150318
  Receipt Date: 20150318
  Transmission Date: 20150721
  Serious: Yes (Death)
  Sender: FDA-Public Use
  Company Number: CO-SA-2015SA033780

PATIENT
  Age: 82 Year
  Sex: Female

DRUGS (2)
  1. LANTUS [Suspect]
     Active Substance: INSULIN GLARGINE
     Indication: DIABETES MELLITUS
     Route: 058
  2. LYXUMIA [Suspect]
     Active Substance: LIXISENATIDE
     Indication: DIABETES MELLITUS
     Route: 058

REACTIONS (1)
  - Diabetes mellitus [Fatal]
